FAERS Safety Report 16725129 (Version 1)
Quarter: 2019Q3

REPORT INFORMATION
  Report Type: Spontaneous
  Country: AT (occurrence: AT)
  Receive Date: 20190821
  Receipt Date: 20190821
  Transmission Date: 20191005
  Serious: Yes (Other)
  Sender: FDA-Public Use
  Company Number: AT-VELOXIS PHARMACEUTICALS-2019VELAT-000102

PATIENT
  Age: 58 Year
  Sex: Male

DRUGS (4)
  1. ENVARSUS XR [Suspect]
     Active Substance: TACROLIMUS
     Indication: IMMUNOSUPPRESSANT DRUG THERAPY
     Dosage: 7.5 MILLIGRAM DAILY
     Route: 065
     Dates: start: 2016
  2. MYCOPHENOLATE MOFETIL. [Suspect]
     Active Substance: MYCOPHENOLATE MOFETIL
     Indication: IMMUNOSUPPRESSANT DRUG THERAPY
     Dosage: 2 GRAM DAILY
     Route: 065
  3. PREDNISOLONE. [Suspect]
     Active Substance: PREDNISOLONE
     Indication: IMMUNOSUPPRESSANT DRUG THERAPY
     Dosage: 10 MILLIGRAM, DAILY
     Route: 065
     Dates: start: 2016
  4. TALIMOGENE LAHERPAREPVEC [Suspect]
     Active Substance: TALIMOGENE LAHERPAREPVEC
     Indication: METASTATIC MALIGNANT MELANOMA
     Dosage: FIRST DOSE OF 10 6 PLAQUE-FORMING UNITS (PFU) ML -1, THREE WEEKS FOLLOWED BY WHICH 10 DOSES OF 10
     Route: 026
     Dates: start: 2016, end: 201706

REACTIONS (5)
  - Off label use [Unknown]
  - Pyrexia [Unknown]
  - Erythema [Unknown]
  - Metastatic malignant melanoma [Recovered/Resolved]
  - Skin hypopigmentation [Unknown]

NARRATIVE: CASE EVENT DATE: 201509
